FAERS Safety Report 11870875 (Version 1)
Quarter: 2015Q4

REPORT INFORMATION
  Report Type: Spontaneous
  Country: US (occurrence: None)
  Receive Date: 20151224
  Receipt Date: 20151224
  Transmission Date: 20160305
  Serious: Yes (Hospitalization)
  Sender: FDA-Public Use
  Company Number: None

PATIENT
  Age: 30 Year
  Sex: Female

DRUGS (14)
  1. HYDROMORPHONE [Concomitant]
     Active Substance: HYDROMORPHONE
  2. MULTIVITAMIN [Concomitant]
     Active Substance: VITAMINS
  3. NORETHINDRONE. [Concomitant]
     Active Substance: NORETHINDRONE
  4. VANCOMYCIN [Suspect]
     Active Substance: VANCOMYCIN
     Indication: INFECTION
     Route: 042
     Dates: start: 20150923, end: 20151030
  5. CASPOFUNGIN [Concomitant]
     Active Substance: CASPOFUNGIN
  6. LORAZEPAM. [Concomitant]
     Active Substance: LORAZEPAM
  7. MAGNESIUM OXIDE. [Concomitant]
     Active Substance: MAGNESIUM OXIDE
  8. LEVOFLOXACIN. [Concomitant]
     Active Substance: LEVOFLOXACIN
  9. OMEGA 3 FATTY ACIDS [Concomitant]
     Active Substance: OMEGA-3 FATTY ACIDS
  10. TACROLIMUS. [Concomitant]
     Active Substance: TACROLIMUS
  11. URSODIAL [Concomitant]
  12. MYCOPHENOLATE [Concomitant]
     Active Substance: MYCOPHENOLIC ACID
  13. ONDANSETRON [Concomitant]
     Active Substance: ONDANSETRON
  14. CALCIUM CARBONATE. [Concomitant]
     Active Substance: CALCIUM CARBONATE

REACTIONS (4)
  - Abdominal pain upper [None]
  - Decreased appetite [None]
  - Nausea [None]
  - Blood creatinine increased [None]

NARRATIVE: CASE EVENT DATE: 20150930
